FAERS Safety Report 11748755 (Version 3)
Quarter: 2016Q1

REPORT INFORMATION
  Report Type: Spontaneous
  Country: PL (occurrence: PL)
  Receive Date: 20151118
  Receipt Date: 20160105
  Transmission Date: 20160525
  Serious: Yes (Hospitalization, Other)
  Sender: FDA-Public Use
  Company Number: PL-ROCHE-1661264

PATIENT
  Age: 69 Year
  Sex: Female
  Weight: 84.7 kg

DRUGS (10)
  1. TACROLIMUS. [Concomitant]
     Active Substance: TACROLIMUS
     Indication: IMMUNOSUPPRESSION
     Dosage: 2X1.0
     Route: 048
  2. CELLCEPT [Suspect]
     Active Substance: MYCOPHENOLATE MOFETIL\MYCOPHENOLATE MOFETIL HYDROCHLORIDE
     Route: 065
     Dates: start: 20150302
  3. PREDNISONE. [Concomitant]
     Active Substance: PREDNISONE
  4. CYMEVENE [Suspect]
     Active Substance: GANCICLOVIR
     Indication: CYTOMEGALOVIRUS TEST POSITIVE
     Dosage: 2X125 MG
     Route: 042
     Dates: start: 20150218, end: 20150303
  5. VALCYTE [Suspect]
     Active Substance: VALGANCICLOVIR HYDROCHLORIDE
     Indication: PROPHYLAXIS
     Dosage: DOSAGE REPORTED AS 1-0-0 TABLET ORALLY
     Route: 048
     Dates: start: 20150303
  6. CELLCEPT [Suspect]
     Active Substance: MYCOPHENOLATE MOFETIL\MYCOPHENOLATE MOFETIL HYDROCHLORIDE
     Dosage: 3X500 MG
     Route: 048
     Dates: end: 20150618
  7. VALCYTE [Suspect]
     Active Substance: VALGANCICLOVIR HYDROCHLORIDE
     Indication: CYTOMEGALOVIRUS TEST POSITIVE
     Route: 048
  8. CELLCEPT [Suspect]
     Active Substance: MYCOPHENOLATE MOFETIL\MYCOPHENOLATE MOFETIL HYDROCHLORIDE
     Route: 065
     Dates: start: 20150212, end: 20150301
  9. CELLCEPT [Suspect]
     Active Substance: MYCOPHENOLATE MOFETIL\MYCOPHENOLATE MOFETIL HYDROCHLORIDE
     Indication: IMMUNOSUPPRESSION
     Route: 065
  10. TRAMAL [Concomitant]
     Active Substance: TRAMADOL
     Dosage: 3X1 AMPOULE
     Route: 042

REACTIONS (23)
  - Leukopenia [Recovered/Resolved]
  - Erysipelas [Unknown]
  - Sepsis [Unknown]
  - Tremor [Unknown]
  - Intervertebral disc protrusion [Unknown]
  - Post procedural haematoma [Unknown]
  - Body temperature increased [Recovered/Resolved]
  - Venous thrombosis limb [Unknown]
  - Back pain [Unknown]
  - Bone marrow toxicity [Unknown]
  - Diabetes mellitus [Unknown]
  - Sciatica [Unknown]
  - Complications of transplanted kidney [Unknown]
  - Movement disorder [Unknown]
  - Blood creatinine increased [Recovering/Resolving]
  - Transplant dysfunction [Recovered/Resolved]
  - Pancytopenia [Unknown]
  - Renal transplant failure [Unknown]
  - Urinary tract infection bacterial [Unknown]
  - Complications of transplant surgery [Unknown]
  - Asthenia [Unknown]
  - Spinal pain [Unknown]
  - Cytomegalovirus infection [Unknown]

NARRATIVE: CASE EVENT DATE: 20150216
